FAERS Safety Report 8569838 (Version 2)
Quarter: 2013Q3

REPORT INFORMATION
  Report Type: Spontaneous
  Country: SE (occurrence: SE)
  Receive Date: 20120518
  Receipt Date: 20130903
  Transmission Date: 20140515
  Serious: Yes (Other)
  Sender: FDA-Public Use
  Company Number: SE-ABBOTT-12P-150-0935361-00

PATIENT
  Sex: Female

DRUGS (6)
  1. ERGENYL RETARD [Suspect]
     Indication: EPILEPSY
     Dosage: 4 DOSAGE FORM;DAILY, TABLET, EXTENDED RELEASE
     Dates: end: 20100417
  2. ERGENYL RETARD [Suspect]
     Dosage: TABLET, EXTENDED RELEASE
     Dates: start: 1997
  3. ERGENYL RETARD [Suspect]
  4. IKTORIVIL [Suspect]
     Indication: EPILEPSY
     Route: 048
     Dates: end: 20100417
  5. IKTORIVIL [Suspect]
     Route: 048
     Dates: start: 1997
  6. IKTORIVIL [Suspect]
     Route: 048

REACTIONS (1)
  - Pre-eclampsia [Unknown]
